FAERS Safety Report 6646485-1 (Version None)
Quarter: 2010Q1

REPORT INFORMATION
  Report Type: 
  Country: None (occurrence: None)
  Receive Date: 20100323
  Receipt Date: 20100312
  Transmission Date: 20100710
  Serious: Yes (Hospitalization)
  Sender: FDA-Public Use
  Company Number: CO-GENENTECH-299387

PATIENT
  Sex: Male

DRUGS (3)
  1. MABTHERA [Suspect]
     Indication: ANKYLOSING SPONDYLITIS
     Dosage: 1000 UNK, UNK
     Route: 042
     Dates: start: 20090408
  2. TRAMADOL CHLORHYDRATE [Concomitant]
     Indication: ANKYLOSING SPONDYLITIS
     Dosage: UNK
     Route: 048
  3. NAPROXEN [Concomitant]
     Indication: ANKYLOSING SPONDYLITIS
     Dosage: 250 MG, UNK
     Route: 048

REACTIONS (1)
  - DYSPNOEA [None]
